FAERS Safety Report 11704664 (Version 2)
Quarter: 2015Q4

REPORT INFORMATION
  Report Type: Report from Study
  Country: PA (occurrence: PA)
  Receive Date: 20151106
  Receipt Date: 20151119
  Transmission Date: 20160304
  Serious: Yes (Hospitalization, Other)
  Sender: FDA-Public Use
  Company Number: PHHY2015PA144692

PATIENT
  Age: 28 Year
  Sex: Male
  Weight: 54.42 kg

DRUGS (7)
  1. LAMOTRIGINE. [Concomitant]
     Active Substance: LAMOTRIGINE
     Indication: PRODUCT USED FOR UNKNOWN INDICATION
     Dosage: UNK UKN, UNK
     Route: 065
  2. EXJADE [Suspect]
     Active Substance: DEFERASIROX
     Indication: SICKLE CELL ANAEMIA
     Dosage: 2 DF, UNK
     Route: 065
  3. EPAMIN [Concomitant]
     Active Substance: PHENYTOIN SODIUM
     Indication: PRODUCT USED FOR UNKNOWN INDICATION
     Dosage: UNK UKN, UNK
     Route: 065
  4. SOMAZINA [Concomitant]
     Active Substance: CITICOLINE
     Dosage: 1 DF, QD
     Route: 048
  5. EPAMIN [Concomitant]
     Active Substance: PHENYTOIN SODIUM
     Dosage: 1 DF, UNK
     Route: 048
  6. SOMAZINA [Concomitant]
     Active Substance: CITICOLINE
     Indication: PRODUCT USED FOR UNKNOWN INDICATION
     Dosage: UNK UKN, UNK
     Route: 065
  7. LAMOTRIGINE. [Concomitant]
     Active Substance: LAMOTRIGINE
     Dosage: 1 DF, UNK
     Route: 048

REACTIONS (10)
  - Thrombosis [Unknown]
  - Hiccups [Recovering/Resolving]
  - Cerebrovascular accident [Unknown]
  - Gait disturbance [Unknown]
  - Hemiparesis [Recovering/Resolving]
  - Moyamoya disease [Recovering/Resolving]
  - Amnesia [Recovering/Resolving]
  - Pneumonia [Unknown]
  - Varicella [Recovering/Resolving]
  - Flatulence [Recovering/Resolving]
